FAERS Safety Report 4665060-1 (Version None)
Quarter: 2005Q2

REPORT INFORMATION
  Report Type: 
  Country: None (occurrence: None)
  Receive Date: 20050517
  Receipt Date: 20050510
  Transmission Date: 20051028
  Serious: No
  Sender: FDA-Public Use
  Company Number: ZONI002152

PATIENT
  Age: 40 Year
  Sex: Male

DRUGS (1)
  1. EXCEGRAN               (ZONISAMIDE) [Suspect]
     Indication: EPILEPSY
     Dosage: 200 MG, 1 IN 1 D, ORAL
     Route: 048
     Dates: start: 20041012, end: 20041023

REACTIONS (4)
  - CHILLS [None]
  - DRUG ERUPTION [None]
  - ECZEMA [None]
  - ERYTHEMA [None]
